FAERS Safety Report 17366770 (Version 1)
Quarter: 2020Q1

REPORT INFORMATION
  Report Type: Report from Study
  Country: JP (occurrence: JP)
  Receive Date: 20200204
  Receipt Date: 20200204
  Transmission Date: 20200409
  Serious: Yes (Death, Hospitalization, Other)
  Sender: FDA-Public Use
  Company Number: JP-TAKEDA-2020TUS006530

PATIENT
  Age: 68 Year
  Sex: Male
  Weight: 58.9 kg

DRUGS (49)
  1. OXINORM                            /00045603/ [Suspect]
     Active Substance: OXYCODONE HYDROCHLORIDE
     Dosage: 5 MILLIGRAM
     Route: 048
     Dates: start: 20181214, end: 20181229
  2. DEXAMETHASONE. [Suspect]
     Active Substance: DEXAMETHASONE
     Dosage: 20 MILLIGRAM, QD
     Route: 065
     Dates: start: 20180310, end: 20180310
  3. DEXAMETHASONE. [Suspect]
     Active Substance: DEXAMETHASONE
     Dosage: 16.5 MILLIGRAM, QD
     Route: 065
     Dates: start: 20180316, end: 20180316
  4. DEXAMETHASONE. [Suspect]
     Active Substance: DEXAMETHASONE
     Dosage: 16.5 MILLIGRAM, QD
     Route: 065
     Dates: start: 20180718, end: 20180718
  5. DEXAMETHASONE. [Suspect]
     Active Substance: DEXAMETHASONE
     Dosage: 16.5 MILLIGRAM, QD
     Route: 065
     Dates: start: 20180914, end: 20180914
  6. CALONAL [Concomitant]
     Active Substance: ACETAMINOPHEN
     Indication: PYREXIA
     Dosage: 600 MILLIGRAM
     Route: 048
     Dates: start: 20180213, end: 20180214
  7. OXYCONTIN [Concomitant]
     Active Substance: OXYCODONE HYDROCHLORIDE
     Dosage: 40 MILLIGRAM, QD
     Route: 048
     Dates: start: 20181119, end: 20181129
  8. MORPHINE HYDROCHLORIDE [Concomitant]
     Active Substance: MORPHINE HYDROCHLORIDE
     Indication: CANCER PAIN
     Dosage: 30 MILLIGRAM
     Route: 065
     Dates: start: 20181230, end: 20181230
  9. QUETIAPINE. [Concomitant]
     Active Substance: QUETIAPINE
     Indication: DELIRIUM
     Dosage: 12.5 MILLIGRAM
     Route: 048
     Dates: start: 20181221, end: 20181229
  10. BORTEZOMIB. [Suspect]
     Active Substance: BORTEZOMIB
     Indication: PLASMA CELL MYELOMA
     Dosage: 0.7 MILLIGRAM/SQ. METER
     Route: 065
     Dates: start: 20180525, end: 20181207
  11. DEXAMETHASONE. [Suspect]
     Active Substance: DEXAMETHASONE
     Dosage: 16.5 MILLIGRAM, QD
     Route: 065
     Dates: start: 20180524, end: 20180524
  12. DEXAMETHASONE. [Suspect]
     Active Substance: DEXAMETHASONE
     Dosage: 20 MILLIGRAM, QD
     Route: 065
     Dates: start: 20180718, end: 20180718
  13. DEXAMETHASONE. [Suspect]
     Active Substance: DEXAMETHASONE
     Dosage: 20 MILLIGRAM, QD
     Route: 065
     Dates: start: 20181122, end: 20181122
  14. DEXAMETHASONE. [Suspect]
     Active Substance: DEXAMETHASONE
     Dosage: 16.5 MILLIGRAM, QD
     Route: 065
     Dates: start: 20181207, end: 20181207
  15. OXYCONTIN [Concomitant]
     Active Substance: OXYCODONE HYDROCHLORIDE
     Indication: SOMNOLENCE
     Dosage: 10 MILLIGRAM, QD
     Route: 048
     Dates: start: 20180405, end: 20181018
  16. PL [Concomitant]
     Active Substance: ACETAMINOPHEN\CAFFEINE\PROMETHAZINE\SALICYLAMIDE
     Indication: NASOPHARYNGITIS
     Dosage: 3 GRAM, QD
     Route: 048
     Dates: start: 20180315, end: 20180320
  17. OXINORM                            /00045603/ [Suspect]
     Active Substance: OXYCODONE HYDROCHLORIDE
     Indication: SOMNOLENCE
     Dosage: 2.5 MILLIGRAM
     Route: 048
     Dates: start: 20180405, end: 20180409
  18. DEXAMETHASONE. [Suspect]
     Active Substance: DEXAMETHASONE
     Dosage: 16.5 MILLIGRAM, QD
     Route: 065
     Dates: start: 20181019, end: 20181019
  19. OXYCONTIN [Concomitant]
     Active Substance: OXYCODONE HYDROCHLORIDE
     Dosage: 20 MILLIGRAM, QD
     Route: 048
     Dates: start: 20181019, end: 20181118
  20. DEXAMETHASONE. [Suspect]
     Active Substance: DEXAMETHASONE
     Dosage: 20 MILLIGRAM, QD
     Route: 065
     Dates: start: 20180317, end: 20180317
  21. DEXAMETHASONE. [Suspect]
     Active Substance: DEXAMETHASONE
     Dosage: 16.5 MILLIGRAM, QD
     Route: 065
     Dates: start: 20180323, end: 20180323
  22. DEXAMETHASONE. [Suspect]
     Active Substance: DEXAMETHASONE
     Dosage: 20 MILLIGRAM, QD
     Route: 065
     Dates: start: 20180324, end: 20180324
  23. DEXAMETHASONE. [Suspect]
     Active Substance: DEXAMETHASONE
     Dosage: 16.5 MILLIGRAM, QD
     Route: 065
     Dates: start: 20180615, end: 20180615
  24. DEXAMETHASONE. [Suspect]
     Active Substance: DEXAMETHASONE
     Dosage: 16.5 MILLIGRAM, QD
     Route: 065
     Dates: start: 20180824, end: 20180824
  25. DEXAMETHASONE. [Suspect]
     Active Substance: DEXAMETHASONE
     Dosage: 20 MILLIGRAM, QD
     Route: 065
     Dates: start: 20180921, end: 20180921
  26. RINDERON VG [Concomitant]
     Active Substance: BETAMETHASONE VALERATE\GENTAMICIN SULFATE
     Indication: THERMAL BURN
     Dosage: UNK
     Route: 061
     Dates: start: 20180302, end: 20180308
  27. LYRICA [Concomitant]
     Active Substance: PREGABALIN
     Indication: SOMNOLENCE
     Dosage: 50 MILLIGRAM, QD
     Route: 048
     Dates: start: 20180410, end: 20180510
  28. MORPHINE HYDROCHLORIDE [Concomitant]
     Active Substance: MORPHINE HYDROCHLORIDE
     Dosage: 60 MILLIGRAM
     Route: 065
     Dates: start: 20181231, end: 20181231
  29. LENALIDOMIDE [Suspect]
     Active Substance: LENALIDOMIDE
     Indication: PLASMA CELL MYELOMA
     Dosage: 20 MILLIGRAM, QD
     Route: 048
     Dates: start: 20180207, end: 20180215
  30. DEXAMETHASONE. [Suspect]
     Active Substance: DEXAMETHASONE
     Dosage: 20 MILLIGRAM, QD
     Route: 065
     Dates: start: 20180217, end: 20180217
  31. DEXAMETHASONE. [Suspect]
     Active Substance: DEXAMETHASONE
     Dosage: 16.5 MILLIGRAM, QD
     Route: 065
     Dates: start: 20180223, end: 20180223
  32. DEXAMETHASONE. [Suspect]
     Active Substance: DEXAMETHASONE
     Dosage: 20 MILLIGRAM, QD
     Route: 065
     Dates: start: 20180224, end: 20180224
  33. DEXAMETHASONE. [Suspect]
     Active Substance: DEXAMETHASONE
     Dosage: 20 MILLIGRAM, QD
     Route: 065
     Dates: start: 20180601, end: 20180601
  34. DEXAMETHASONE. [Suspect]
     Active Substance: DEXAMETHASONE
     Dosage: 20 MILLIGRAM, QD
     Route: 065
     Dates: start: 20180808, end: 20180808
  35. DEXAMETHASONE. [Suspect]
     Active Substance: DEXAMETHASONE
     Dosage: 16.5 MILLIGRAM, QD
     Route: 065
     Dates: start: 20181116, end: 20181116
  36. SOLDEM 1 [Concomitant]
     Active Substance: DEXTROSE\SODIUM CHLORIDE\SODIUM LACTATE
     Indication: ACUTE KIDNEY INJURY
     Dosage: 1000 MILLILITER, QD
     Route: 065
     Dates: start: 20180405, end: 20180424
  37. MS CONTIN [Suspect]
     Active Substance: MORPHINE SULFATE
     Indication: CANCER PAIN
     Dosage: 30 MILLIGRAM, QD
     Route: 048
     Dates: start: 20171010, end: 20180404
  38. DEXAMETHASONE. [Suspect]
     Active Substance: DEXAMETHASONE
     Indication: PLASMA CELL MYELOMA
     Dosage: 16.5 MILLIGRAM, QD
     Route: 065
     Dates: start: 20180207, end: 20180207
  39. DEXAMETHASONE. [Suspect]
     Active Substance: DEXAMETHASONE
     Dosage: 20 MILLIGRAM, QD
     Route: 065
     Dates: start: 20180208, end: 20180208
  40. DEXAMETHASONE. [Suspect]
     Active Substance: DEXAMETHASONE
     Dosage: 16.5 MILLIGRAM, QD
     Route: 065
     Dates: start: 20180216, end: 20180216
  41. DEXAMETHASONE. [Suspect]
     Active Substance: DEXAMETHASONE
     Dosage: 20 MILLIGRAM, QD
     Route: 065
     Dates: start: 20180831, end: 20180831
  42. DEXAMETHASONE. [Suspect]
     Active Substance: DEXAMETHASONE
     Dosage: 16.5 MILLIGRAM, QD
     Route: 065
     Dates: start: 20180309, end: 20180309
  43. DEXAMETHASONE. [Suspect]
     Active Substance: DEXAMETHASONE
     Dosage: 16.5 MILLIGRAM, QD
     Route: 065
     Dates: start: 20180711, end: 20180711
  44. SYMPROIC [Concomitant]
     Active Substance: NALDEMEDINE
     Indication: CONSTIPATION
     Dosage: 0.2 MILLIGRAM
     Route: 048
  45. FENTOS [Suspect]
     Active Substance: FENTANYL
     Indication: CANCER PAIN
     Dosage: 2 MILLIGRAM, QD
     Route: 062
     Dates: start: 20181214, end: 20181229
  46. DARZALEX [Suspect]
     Active Substance: DARATUMUMAB
     Indication: PLASMA CELL MYELOMA
     Dosage: 16 MILLIGRAM/KILOGRAM, QD
     Route: 041
     Dates: start: 20180207, end: 20181207
  47. LENALIDOMIDE [Suspect]
     Active Substance: LENALIDOMIDE
     Dosage: 5 MILLIGRAM, QD
     Route: 048
     Dates: start: 20180309, end: 20180315
  48. DEXAMETHASONE. [Suspect]
     Active Substance: DEXAMETHASONE
     Dosage: 20 MILLIGRAM, QD
     Route: 065
     Dates: start: 20180622, end: 20180622
  49. DEXAMETHASONE. [Suspect]
     Active Substance: DEXAMETHASONE
     Dosage: 20 MILLIGRAM, QD
     Route: 065
     Dates: start: 20181026, end: 20181026

REACTIONS (19)
  - Clostridium difficile infection [Recovering/Resolving]
  - Nausea [Recovered/Resolved]
  - Constipation [Recovering/Resolving]
  - Diarrhoea [Recovered/Resolved]
  - Fatigue [Recovered/Resolved]
  - Pyrexia [Recovered/Resolved]
  - Plasma cell myeloma [Fatal]
  - Cataract [Recovered/Resolved]
  - Spinal compression fracture [Not Recovered/Not Resolved]
  - Cancer pain [Not Recovered/Not Resolved]
  - Nasopharyngitis [Recovered/Resolved]
  - Platelet count decreased [Not Recovered/Not Resolved]
  - Delirium [Recovering/Resolving]
  - Acute kidney injury [Recovering/Resolving]
  - Red blood cell count decreased [Not Recovered/Not Resolved]
  - Thermal burn [Recovered/Resolved]
  - Somnolence [Recovered/Resolved]
  - Muscular weakness [Recovered/Resolved]
  - White blood cell count decreased [Recovered/Resolved]

NARRATIVE: CASE EVENT DATE: 20180211
